FAERS Safety Report 6252073-1 (Version None)
Quarter: 2009Q2

REPORT INFORMATION
  Report Type: 
  Country: None (occurrence: None)
  Receive Date: 20090630
  Receipt Date: 20040622
  Transmission Date: 20091009
  Serious: Yes (Hospitalization)
  Sender: FDA-Public Use
  Company Number: US-ROCHE-638767

PATIENT
  Sex: Male

DRUGS (18)
  1. ENFUVIRTIDE [Suspect]
     Route: 065
     Dates: start: 20030916, end: 20050101
  2. COMBIVIR [Concomitant]
     Dates: start: 20030826, end: 20040727
  3. NORVIR [Concomitant]
     Dates: start: 20030826, end: 20050727
  4. NORVIR [Concomitant]
     Dates: start: 20070604, end: 20080126
  5. REYATAZ [Concomitant]
     Dates: start: 20030826, end: 20050722
  6. SUSTIVA [Concomitant]
     Dates: start: 20030826, end: 20041025
  7. EPIVIR [Concomitant]
     Dates: start: 20040627, end: 20060531
  8. ZERIT [Concomitant]
     Dates: start: 20040627, end: 20040913
  9. VIRACEPT [Concomitant]
     Dates: start: 20050727, end: 20060913
  10. ZIAGEN [Concomitant]
     Dates: start: 20050727, end: 20060531
  11. EPZICOM [Concomitant]
     Dates: start: 20060531, end: 20060913
  12. PREZISTA [Concomitant]
     Dates: start: 20070604, end: 20080126
  13. ISENTRESS [Concomitant]
     Dates: start: 20070606, end: 20080126
  14. DIFLUCAN [Concomitant]
     Dates: start: 20021001, end: 20080126
  15. ZMAX [Concomitant]
     Dates: start: 20021001, end: 20070926
  16. DAPSONE [Concomitant]
     Dates: start: 20030729, end: 20040428
  17. CLINDAMYCIN [Concomitant]
     Dates: start: 20050301, end: 20050308
  18. RIFAMPIN [Concomitant]
     Dates: start: 20050301, end: 20050308

REACTIONS (2)
  - ANAEMIA [None]
  - HIV INFECTION CDC GROUP IV SUBGROUP A [None]
